FAERS Safety Report 15939161 (Version 4)
Quarter: 2020Q2

REPORT INFORMATION
  Report Type: Spontaneous
  Country: US (occurrence: US)
  Receive Date: 20190208
  Receipt Date: 20200414
  Transmission Date: 20200713
  Serious: Yes (Other)
  Sender: FDA-Public Use
  Company Number: US-PFIZER INC-2019057021

PATIENT
  Sex: Female

DRUGS (2)
  1. METHOTREXATE SODIUM. [Suspect]
     Active Substance: METHOTREXATE SODIUM
     Dosage: 15 MG, WEEKLY [2.5 MG 6 TABLETS ONCE A WEEK]
     Route: 048
     Dates: start: 20101104, end: 20140115
  2. METHOTREXATE SODIUM. [Suspect]
     Active Substance: METHOTREXATE SODIUM
     Dosage: UNK
     Dates: start: 201011, end: 201403

REACTIONS (3)
  - Dyspnoea [Unknown]
  - Drug hypersensitivity [Unknown]
  - Interstitial lung disease [Unknown]
